FAERS Safety Report 23595359 (Version 1)
Quarter: 2024Q1

REPORT INFORMATION
  Report Type: Spontaneous
  Country: FI (occurrence: FI)
  Receive Date: 20240305
  Receipt Date: 20240305
  Transmission Date: 20240410
  Serious: Yes (Hospitalization)
  Sender: FDA-Public Use
  Company Number: None

PATIENT
  Age: 64 Year
  Sex: Female

DRUGS (1)
  1. ATORVASTATIN [Suspect]
     Active Substance: ATORVASTATIN
     Indication: Coronary artery disease
     Dosage: STRENGTH:41.36 MG, 40 MG X 1
     Dates: start: 202001, end: 202312

REACTIONS (3)
  - Dysphagia [Not Recovered/Not Resolved]
  - Bedridden [Not Recovered/Not Resolved]
  - Immune-mediated myositis [Not Recovered/Not Resolved]

NARRATIVE: CASE EVENT DATE: 20230101
